FAERS Safety Report 20658048 (Version 2)
Quarter: 2022Q2

REPORT INFORMATION
  Report Type: Report from Study
  Country: JP (occurrence: JP)
  Receive Date: 20220331
  Receipt Date: 20220412
  Transmission Date: 20220721
  Serious: Yes (Life-Threatening)
  Sender: FDA-Public Use
  Company Number: JP-MYLANLABS-2022M1023763

PATIENT
  Age: 77 Year
  Sex: Female

DRUGS (4)
  1. CARBOPLATIN [Suspect]
     Active Substance: CARBOPLATIN
     Indication: Ovarian cancer
     Dosage: UNK
     Route: 042
  2. RANITIDINE [Concomitant]
     Active Substance: RANITIDINE
     Indication: Anaphylaxis prophylaxis
     Route: 065
  3. DEXAMETHASONE [Concomitant]
     Active Substance: DEXAMETHASONE
     Indication: Anaphylaxis prophylaxis
     Route: 065
  4. DIPHENHYDRAMINE [Concomitant]
     Active Substance: DIPHENHYDRAMINE
     Indication: Anaphylaxis prophylaxis
     Route: 065

REACTIONS (1)
  - Anaphylactic reaction [Recovered/Resolved]
